FAERS Safety Report 9738253 (Version 1)
Quarter: 2013Q4

REPORT INFORMATION
  Report Type: Spontaneous
  Country: NL (occurrence: NL)
  Receive Date: 20131208
  Receipt Date: 20131208
  Transmission Date: 20140711
  Serious: Yes (Disabling, Other)
  Sender: FDA-Public Use
  Company Number: NL-TEVA-447825ISR

PATIENT
  Sex: Female

DRUGS (5)
  1. OMEPRAZOLE [Suspect]
     Indication: PROPHYLAXIS AGAINST GASTROINTESTINAL ULCER
     Route: 065
  2. MELOXICAM [Suspect]
     Route: 065
  3. TERIPARATIDE [Concomitant]
     Indication: OSTEOPOROSIS PROPHYLAXIS
     Route: 065
  4. BUDESONIDE [Concomitant]
     Route: 065
  5. CALCIUM, COLECALCIFEROL [Concomitant]
     Route: 065

REACTIONS (2)
  - Deafness unilateral [Unknown]
  - Tinnitus [Unknown]
